FAERS Safety Report 6026406-5 (Version None)
Quarter: 2009Q1

REPORT INFORMATION
  Report Type: 
  Country: None (occurrence: None)
  Receive Date: 20090102
  Receipt Date: 20081222
  Transmission Date: 20090719
  Serious: Yes (Hospitalization)
  Sender: FDA-Public Use
  Company Number: PT-AMGEN-UK325270

PATIENT
  Sex: Female
  Weight: 73.5 kg

DRUGS (12)
  1. NEULASTA [Suspect]
     Indication: CHEMOTHERAPY
     Route: 058
     Dates: start: 20080724
  2. DEXAMETHASONE [Concomitant]
  3. METOCLOPRAMIDE [Concomitant]
  4. PREDNISOLONE [Concomitant]
     Route: 048
  5. RANITIDINE [Concomitant]
     Route: 048
  6. NISTATIN [Concomitant]
  7. DOCETAXEL [Concomitant]
     Dates: start: 20080723
  8. GRANOCYTE [Concomitant]
  9. CYCLOPHOSPHAMIDE [Concomitant]
     Dates: start: 20080723
  10. DOXORUBICIN HYDROCHLORIDE [Concomitant]
     Dates: start: 20080723
  11. CLEMASTINE FUMARATE [Concomitant]
     Route: 042
  12. ONDANSETRON [Concomitant]
     Route: 042

REACTIONS (1)
  - FEBRILE NEUTROPENIA [None]
